FAERS Safety Report 5494984-0 (Version None)
Quarter: 2007Q4

REPORT INFORMATION
  Report Type: 
  Country: None (occurrence: None)
  Receive Date: 20071024
  Receipt Date: 20071015
  Transmission Date: 20080405
  Serious: Yes (Death)
  Sender: FDA-Public Use
  Company Number: FR-AVENTIS-200710729FR

PATIENT
  Age: 71 Year
  Sex: Male
  Weight: 58 kg

DRUGS (11)
  1. LASIX [Suspect]
     Route: 048
     Dates: start: 20070127, end: 20070211
  2. CLAFORAN [Suspect]
     Route: 042
     Dates: start: 20070205, end: 20070209
  3. ALDACTONE [Suspect]
     Route: 048
     Dates: start: 20070127, end: 20070211
  4. EFFERALGAN                         /00020001/ [Suspect]
     Route: 048
     Dates: start: 20070131, end: 20070209
  5. CIFLOX                             /00697201/ [Suspect]
     Route: 048
     Dates: start: 20070209, end: 20070210
  6. INIPOMP                            /01263201/ [Suspect]
     Route: 048
     Dates: start: 20070206, end: 20070211
  7. SOLUPRED                           /00016201/ [Concomitant]
     Route: 048
     Dates: start: 20070206, end: 20070211
  8. AERIUS                             /01398501/ [Concomitant]
     Route: 048
     Dates: start: 20070206, end: 20070211
  9. ATARAX                             /00058402/ [Concomitant]
     Route: 048
     Dates: start: 20070206, end: 20070209
  10. PROPRANOLOL HYDROCHLORIDE [Concomitant]
  11. MYCOSTATIN [Concomitant]
     Route: 048

REACTIONS (1)
  - TOXIC EPIDERMAL NECROLYSIS [None]
